FAERS Safety Report 19585221 (Version 2)
Quarter: 2021Q3

REPORT INFORMATION
  Report Type: Spontaneous
  Country: SK (occurrence: SK)
  Receive Date: 20210721
  Receipt Date: 20210723
  Transmission Date: 20211014
  Serious: Yes (Other)
  Sender: FDA-Public Use
  Company Number: SK-ROCHE-2873645

PATIENT
  Sex: Female

DRUGS (1)
  1. OCREVUS [Suspect]
     Active Substance: OCRELIZUMAB
     Indication: MULTIPLE SCLEROSIS
     Dosage: RECENT APPLICATION ON /FEB/2021?DOSE: 4 X 600 MG?DISCONTINUED OCREVUS TREATMENT
     Route: 042
     Dates: start: 201909

REACTIONS (1)
  - Breast cancer [Unknown]
